FAERS Safety Report 15835715 (Version 1)
Quarter: 2019Q1

REPORT INFORMATION
  Report Type: Report from Study
  Country: IT (occurrence: IT)
  Receive Date: 20190117
  Receipt Date: 20190117
  Transmission Date: 20190417
  Serious: Yes (Hospitalization, Other)
  Sender: FDA-Public Use
  Company Number: IT-AMGEN-ITACT2019005112

PATIENT
  Age: 79 Year
  Sex: Male
  Weight: 91 kg

DRUGS (2)
  1. PANITUMUMAB [Suspect]
     Active Substance: PANITUMUMAB
     Indication: COLORECTAL CANCER METASTATIC
     Dosage: 6 MG/KG, UNK
     Route: 065
     Dates: start: 20181126
  2. FOLFOX [Suspect]
     Active Substance: FLUOROURACIL\LEUCOVORIN CALCIUM\OXALIPLATIN
     Indication: COLORECTAL CANCER METASTATIC
     Dosage: AS PER RPOTOCOL DOSE
     Route: 065
     Dates: start: 20181126

REACTIONS (1)
  - Renal failure [Not Recovered/Not Resolved]

NARRATIVE: CASE EVENT DATE: 20190102
